FAERS Safety Report 9233607 (Version 1)
Quarter: 2013Q2

REPORT INFORMATION
  Report Type: Spontaneous
  Country: US (occurrence: US)
  Receive Date: 20130416
  Receipt Date: 20130416
  Transmission Date: 20140414
  Serious: No
  Sender: FDA-Public Use
  Company Number: US-BANPHARM-20130525

PATIENT
  Sex: Female

DRUGS (1)
  1. ALEVE LIQUID GELS 220MG [Suspect]
     Indication: HEADACHE
     Dosage: 1 DF, QD,
     Route: 048

REACTIONS (2)
  - Feeling abnormal [Recovered/Resolved]
  - Somnolence [Recovered/Resolved]
